FAERS Safety Report 8579489 (Version 2)
Quarter: 2013Q1

REPORT INFORMATION
  Report Type: Spontaneous
  Country: US (occurrence: US)
  Receive Date: 20120525
  Receipt Date: 20130207
  Transmission Date: 20140127
  Serious: No
  Sender: FDA-Public Use
  Company Number: US-BIOGENIDEC-2012BI017904

PATIENT
  Age: 45 None
  Sex: Female

DRUGS (1)
  1. TYSABRI [Suspect]
     Indication: MULTIPLE SCLEROSIS
     Route: 042
     Dates: start: 20110906

REACTIONS (5)
  - Stress [Not Recovered/Not Resolved]
  - Suicidal ideation [Unknown]
  - Homicidal ideation [Unknown]
  - Insomnia [Recovered/Resolved]
  - Chest pain [Not Recovered/Not Resolved]
